FAERS Safety Report 20921427 (Version 12)
Quarter: 2022Q4

REPORT INFORMATION
  Report Type: Report from Study
  Country: AU (occurrence: AU)
  Receive Date: 20220606
  Receipt Date: 20221227
  Transmission Date: 20230113
  Serious: Yes (Hospitalization)
  Sender: FDA-Public Use
  Company Number: AU-PFIZER INC-202200772271

PATIENT
  Age: 40 Year
  Sex: Female
  Weight: 75 kg

DRUGS (12)
  1. ABROCITINIB [Suspect]
     Active Substance: ABROCITINIB
     Indication: Dermatitis atopic
     Dosage: 200 MG, DAILY
     Route: 048
     Dates: start: 20210601, end: 20220527
  2. ELOCON [Concomitant]
     Active Substance: MOMETASONE FUROATE
     Indication: Dermatitis atopic
     Dosage: 0.1 %, DAILY
     Route: 061
     Dates: start: 2010
  3. TACROLIMUS [Concomitant]
     Active Substance: TACROLIMUS
     Indication: Dermatitis atopic
     Dosage: 0.1 %, DAILY
     Route: 061
     Dates: start: 20210301
  4. MUPIROCIN [Concomitant]
     Active Substance: MUPIROCIN
     Indication: Nasal disorder
     Dosage: 2 %, 2X/DAY
     Route: 061
  5. PIZOTYLINE [Concomitant]
     Active Substance: PIZOTYLINE
     Indication: Status migrainosus
     Dosage: 1.5 MG, FOR NIGHT (NOCTE)
     Route: 048
     Dates: start: 20211201
  6. TOPIRAMATE [Concomitant]
     Active Substance: TOPIRAMATE
     Indication: Migraine
     Dosage: 50 MG, DAILY
     Route: 048
     Dates: start: 20211209
  7. KETAMINE [Concomitant]
     Active Substance: KETAMINE
     Indication: Status migrainosus
     Dosage: 8 MG/HR, CONTINUOUS OVER 24 HOURS
     Route: 042
     Dates: start: 20220430, end: 20220511
  8. SERETIDE [Concomitant]
     Active Substance: FLUTICASONE PROPIONATE\SALMETEROL XINAFOATE
     Indication: Asthma
     Dosage: [FLUTICASONE PROPIONATE 500 UG]/ [SALMETEROL XINAFOATE 50 UG], 1 PUFF, DAILY
     Route: 055
     Dates: start: 2018
  9. AMITRIPTYLINE [Concomitant]
     Active Substance: AMITRIPTYLINE
     Indication: Migraine
     Dosage: 30 MG, FOR NIGHT (NOCTE)
     Route: 048
     Dates: start: 20220502
  10. FEXOFENADINE [Concomitant]
     Active Substance: FEXOFENADINE HYDROCHLORIDE
     Indication: Chronic spontaneous urticaria
     Dosage: 180 MG, 2X/DAY (BD)
     Route: 048
     Dates: start: 201901
  11. ALBUTEROL [Concomitant]
     Active Substance: ALBUTEROL
     Indication: Asthma
     Dosage: 1 DF (PUFF), AS NEEDED
     Route: 055
     Dates: start: 2018
  12. TRANEXAMIC ACID [Concomitant]
     Active Substance: TRANEXAMIC ACID
     Indication: Heavy menstrual bleeding
     Dosage: 1 G, 4X/DAY
     Route: 048
     Dates: start: 20210531

REACTIONS (1)
  - Bronchopulmonary aspergillosis [Recovering/Resolving]

NARRATIVE: CASE EVENT DATE: 20220525
